FAERS Safety Report 5132943-8 (Version None)
Quarter: 2006Q4

REPORT INFORMATION
  Report Type: 
  Country: None (occurrence: None)
  Receive Date: 20061017
  Receipt Date: 20061002
  Transmission Date: 20070319
  Serious: Yes (Hospitalization, Other)
  Sender: FDA-Public Use
  Company Number: RB-4100-2006

PATIENT
  Age: 31 Year
  Sex: Male

DRUGS (1)
  1. SUBUTEX [Suspect]
     Indication: DEPENDENCE
     Route: 042

REACTIONS (3)
  - ERYSIPELAS [None]
  - INCORRECT ROUTE OF DRUG ADMINISTRATION [None]
  - INTERTRIGO [None]
